FAERS Safety Report 18950409 (Version 1)
Quarter: 2021Q1

REPORT INFORMATION
  Report Type: Spontaneous
  Country: US (occurrence: US)
  Receive Date: 20210228
  Receipt Date: 20210228
  Transmission Date: 20210420
  Serious: No
  Sender: FDA-Public Use
  Company Number: US-ROCHE-2733589

PATIENT
  Sex: Female

DRUGS (3)
  1. XOLAIR [Suspect]
     Active Substance: OMALIZUMAB
     Indication: HIV INFECTION
     Dosage: 150 MG ML
     Route: 058
     Dates: start: 202003
  2. XOLAIR [Suspect]
     Active Substance: OMALIZUMAB
     Indication: HIV INFECTION
  3. XOLAIR [Suspect]
     Active Substance: OMALIZUMAB
     Indication: HIV INFECTION

REACTIONS (3)
  - Malaise [Unknown]
  - Off label use [Unknown]
  - Intentional product use issue [Unknown]
